FAERS Safety Report 7956660-1 (Version None)
Quarter: 2011Q4

REPORT INFORMATION
  Report Type: 
  Country: None (occurrence: None)
  Receive Date: 20111130
  Receipt Date: 20111114
  Transmission Date: 20120403
  Serious: Yes (Life-Threatening, Hospitalization, Other)
  Sender: FDA-Public Use
  Company Number: 2011AP002375

PATIENT
  Age: 73 Year
  Sex: Male

DRUGS (11)
  1. FERROUS FUMARATE [Concomitant]
  2. LISINOPRIL [Concomitant]
  3. RANITIDINE HYDROCHLORIDE [Concomitant]
  4. SENOKOT /01226001/ (SENNOSIDE B) [Concomitant]
  5. ASPIRIN [Concomitant]
  6. SPIRONALCTONE (SPIRONOLACTONE) [Concomitant]
  7. WARFARIN SODIUM [Concomitant]
  8. OMEPRAZOLE [Suspect]
     Indication: OESOPHAGITIS
     Dosage: 40 MG
     Dates: start: 20110228, end: 20111004
  9. LACTULOSE [Concomitant]
  10. DILTIAZEM HYDROCHLORIDE [Concomitant]
  11. SIMVASTATIN [Concomitant]

REACTIONS (13)
  - MALAISE [None]
  - RENAL FAILURE ACUTE [None]
  - ALANINE AMINOTRANSFERASE INCREASED [None]
  - FATIGUE [None]
  - TUBULOINTERSTITIAL NEPHRITIS [None]
  - SEPSIS [None]
  - NEPHROPATHY [None]
  - HYPOTENSION [None]
  - CULTURE URINE POSITIVE [None]
  - HAEMOGLOBIN DECREASED [None]
  - MYALGIA [None]
  - DECREASED APPETITE [None]
  - HYPOPHAGIA [None]
